FAERS Safety Report 6877748-2 (Version None)
Quarter: 2010Q3

REPORT INFORMATION
  Report Type: 
  Country: None (occurrence: None)
  Receive Date: 20100727
  Receipt Date: 20100630
  Transmission Date: 20110219
  Serious: No
  Sender: FDA-Public Use
  Company Number: US-ABBOTT-10P-163-0655432-00

PATIENT
  Sex: Female

DRUGS (3)
  1. SYNTHROID [Suspect]
     Indication: HYPOTHYROIDISM
     Dates: start: 20100503, end: 20100504
  2. SYNTHROID [Suspect]
     Dates: start: 20100601
  3. LEVOTHYROXINE (GENERIC UNKNOWN BRAND) [Suspect]
     Indication: HYPOTHYROIDISM
     Dates: start: 20091201, end: 20091201

REACTIONS (3)
  - DIZZINESS [None]
  - DYSPNOEA [None]
  - MALAISE [None]
